FAERS Safety Report 9699847 (Version 2)
Quarter: 2014Q1

REPORT INFORMATION
  Report Type: Spontaneous
  Country: CR (occurrence: CR)
  Receive Date: 20131121
  Receipt Date: 20140328
  Transmission Date: 20141002
  Serious: Yes (Hospitalization)
  Sender: FDA-Public Use
  Company Number: CR-AMGEN-CRISP2013081821

PATIENT
  Age: 62 Year
  Sex: Female
  Weight: 97 kg

DRUGS (4)
  1. ENBREL [Suspect]
     Indication: PRODUCT USED FOR UNKNOWN INDICATION
     Dosage: 50 MG, WEEKLY
     Route: 030
     Dates: start: 20110212, end: 20121128
  2. CORTISONE [Concomitant]
     Dosage: UNK
     Route: 042
     Dates: start: 19901112
  3. PREDNISOLONE [Concomitant]
     Dosage: UNK
     Route: 048
     Dates: start: 20001112
  4. TENOXICAM [Concomitant]
     Dosage: UNK
     Route: 048
     Dates: start: 20011112

REACTIONS (5)
  - Hypersensitivity [Recovered/Resolved]
  - Rash [Recovered/Resolved]
  - Skin ulcer [Recovering/Resolving]
  - Impaired healing [Recovering/Resolving]
  - Insomnia [Unknown]
